FAERS Safety Report 5970582 (Version 15)
Quarter: 2013Q3

REPORT INFORMATION
  Report Type: Spontaneous
  Country: US (occurrence: US)
  Receive Date: 20060127
  Receipt Date: 20130801
  Transmission Date: 20140515
  Serious: Yes (Death, Hospitalization, Other)
  Sender: FDA-Public Use
  Company Number: PHEH2006US01254

PATIENT
  Age: 52 Year
  Sex: Female
  Weight: 76.19 kg

DRUGS (38)
  1. AREDIA [Suspect]
     Indication: METASTASES TO BONE
     Route: 042
     Dates: start: 200206, end: 20021106
  2. ZOMETA [Suspect]
     Indication: METASTASES TO BONE
     Route: 042
     Dates: start: 20021204, end: 20050624
  3. ARIMIDEX [Concomitant]
     Indication: BREAST CANCER
     Dosage: 1 MG, QD
     Route: 048
  4. VIOXX [Concomitant]
     Indication: MUSCULOSKELETAL PAIN
     Dosage: 25 MG, QD
     Route: 048
  5. CELEXA [Concomitant]
     Dosage: 40 MG, QD
     Route: 048
  6. AMITRIPTYLINE [Concomitant]
     Dosage: 50 MG, QD
     Route: 048
  7. ZOCOR [Concomitant]
     Dosage: 40 MG, QD
     Route: 048
  8. DIOVAN [Concomitant]
     Route: 048
  9. HYDROCHLOROTHIAZIDE [Concomitant]
     Dosage: 25 MG, QD
     Route: 048
  10. MS CONTIN [Concomitant]
     Dosage: 15 MG, BID
     Route: 048
  11. EFFEXOR [Concomitant]
  12. ZOLADEX [Concomitant]
     Indication: BREAST CANCER
  13. 5-FU [Concomitant]
  14. ADRIAMYCIN [Concomitant]
  15. CYTOXAN [Concomitant]
  16. TAXOTERE [Concomitant]
  17. EPIRUBICIN [Concomitant]
  18. FASLODEX [Concomitant]
  19. TAXOL [Concomitant]
  20. GLUCOSAMINE SULFATE W/CHONDROITIN [Concomitant]
  21. NAPROXEN [Concomitant]
  22. POTASSIUM [Concomitant]
  23. METOPROLOL [Concomitant]
  24. PROTONIX [Concomitant]
  25. NEXIUM [Concomitant]
     Indication: GASTROOESOPHAGEAL REFLUX DISEASE
  26. ONDANSETRON [Concomitant]
  27. PROPOFOL [Concomitant]
  28. MIDAZOLAM [Concomitant]
  29. FENTANYL [Concomitant]
  30. HEPARIN [Concomitant]
  31. CEFOXITIN [Concomitant]
  32. AVASTIN [Concomitant]
  33. LACTULOSE [Concomitant]
  34. OMNICEF [Concomitant]
  35. ULTRAM [Concomitant]
  36. VICODIN [Concomitant]
  37. TUSSIONEX [Concomitant]
  38. ELAVIL [Concomitant]

REACTIONS (75)
  - Limb deformity [Unknown]
  - Lung infection [Unknown]
  - Dehydration [Unknown]
  - Vomiting [Unknown]
  - Disorientation [Unknown]
  - Emotional disorder [Unknown]
  - Postmenopausal haemorrhage [Unknown]
  - Ligament sprain [Unknown]
  - Diarrhoea [Unknown]
  - Rosacea [Unknown]
  - Acne cystic [Unknown]
  - Plantar fasciitis [Unknown]
  - Tendonitis [Unknown]
  - Dermatitis contact [Unknown]
  - Fungal infection [Unknown]
  - Death [Fatal]
  - Osteonecrosis of jaw [Unknown]
  - Lymphadenopathy [Unknown]
  - Mouth ulceration [Unknown]
  - Bone disorder [Unknown]
  - Primary sequestrum [Unknown]
  - Nasal mucosal disorder [Unknown]
  - Metastases to bone [Unknown]
  - Malignant neoplasm progression [Unknown]
  - Gingival pain [Unknown]
  - Gingival abscess [Unknown]
  - Gingival disorder [Unknown]
  - Bronchitis chronic [Unknown]
  - Respiratory tract infection [Unknown]
  - Pericarditis constrictive [Unknown]
  - Pneumonia [Unknown]
  - Cardiac failure congestive [Unknown]
  - Pleural effusion [Unknown]
  - Cardiac valve disease [Unknown]
  - Cachexia [Unknown]
  - Malnutrition [Unknown]
  - Dyspnoea [Recovering/Resolving]
  - Intervertebral disc degeneration [Unknown]
  - Intervertebral disc protrusion [Unknown]
  - Goitre [Unknown]
  - Atelectasis [Unknown]
  - Lung infiltration [Unknown]
  - Uterine leiomyoma [Unknown]
  - Rash papular [Unknown]
  - Weight decreased [Unknown]
  - Decreased appetite [Unknown]
  - Asthenia [Unknown]
  - Device related infection [Unknown]
  - Diverticulum intestinal [Unknown]
  - Oesophagitis [Unknown]
  - Gastritis [Unknown]
  - Abdominal pain [Unknown]
  - Exostosis [Unknown]
  - Bone lesion [Unknown]
  - Synovial cyst [Unknown]
  - Auricular perichondritis [Unknown]
  - Sinus tachycardia [Unknown]
  - Pulmonary granuloma [Unknown]
  - Blood thyroid stimulating hormone increased [Unknown]
  - Blood triglycerides increased [Unknown]
  - Bronchial hyperreactivity [Unknown]
  - Bronchospasm [Unknown]
  - Paraesthesia [Unknown]
  - Hypoaesthesia [Unknown]
  - Metastases to lung [Unknown]
  - Metastases to bladder [Unknown]
  - Gastrostomy failure [Unknown]
  - Neutropenia [Unknown]
  - Pyrexia [Unknown]
  - Staphylococcal infection [Unknown]
  - Herpes zoster [Recovering/Resolving]
  - Sinusitis [Unknown]
  - Anaemia [Unknown]
  - Asthma [Unknown]
  - Hypoxia [Unknown]
